FAERS Safety Report 9378639 (Version 4)
Quarter: 2013Q3

REPORT INFORMATION
  Report Type: Spontaneous
  Country: FR (occurrence: FR)
  Receive Date: 20130702
  Receipt Date: 20130918
  Transmission Date: 20140515
  Serious: Yes (Disabling, Other)
  Sender: FDA-Public Use
  Company Number: FR-CELGENEUS-056-21880-13044814

PATIENT
  Age: 69 Year
  Sex: Male

DRUGS (6)
  1. REVLIMID [Suspect]
     Indication: PLASMA CELL MYELOMA
     Dosage: 25 MILLIGRAM
     Route: 048
     Dates: start: 20100305
  2. REVLIMID [Suspect]
     Dosage: 15 MILLIGRAM
     Route: 048
     Dates: end: 20101104
  3. DEXAMETHASONE [Concomitant]
     Indication: PLASMA CELL MYELOMA
     Dosage: 20 MILLIGRAM
     Route: 065
     Dates: start: 20100303, end: 20101104
  4. ANTI-CS1 ANTIBODY [Concomitant]
     Indication: PLASMA CELL MYELOMA
     Route: 065
  5. BACTRIM [Concomitant]
     Indication: BRONCHITIS
     Dosage: NOT PROVIDED
     Route: 065
     Dates: end: 20101024
  6. KARDEGIC [Concomitant]
     Indication: PRODUCT USED FOR UNKNOWN INDICATION
     Route: 065
     Dates: start: 20100305, end: 20101104

REACTIONS (5)
  - Activities of daily living impaired [Recovered/Resolved]
  - Amnestic disorder [Recovered/Resolved with Sequelae]
  - Apathy [Recovering/Resolving]
  - Aphasia [Recovering/Resolving]
  - Dermatitis exfoliative [Recovered/Resolved]
